FAERS Safety Report 19292502 (Version 2)
Quarter: 2022Q2

REPORT INFORMATION
  Report Type: Spontaneous
  Country: US (occurrence: US)
  Receive Date: 20210524
  Receipt Date: 20220606
  Transmission Date: 20220720
  Serious: Yes (Hospitalization, Other)
  Sender: FDA-Public Use
  Company Number: US-AMGEN-USASP2021076980

PATIENT
  Age: 74 Year
  Sex: Male

DRUGS (3)
  1. CARFILZOMIB [Suspect]
     Active Substance: CARFILZOMIB
     Indication: Plasma cell myeloma
     Dosage: UNK
     Route: 065
  2. LENALIDOMIDE [Concomitant]
     Active Substance: LENALIDOMIDE
     Indication: Plasma cell myeloma
     Dosage: UNK
  3. DEXAMETHASONE [Concomitant]
     Active Substance: DEXAMETHASONE
     Indication: Plasma cell myeloma
     Dosage: UNK

REACTIONS (12)
  - Cardiac amyloidosis [Unknown]
  - Orthostatic hypotension [Unknown]
  - Vasoplegia syndrome [Unknown]
  - Autonomic nervous system imbalance [Unknown]
  - Hypovolaemia [Unknown]
  - Cardiac failure acute [Unknown]
  - Febrile neutropenia [Unknown]
  - Atrial fibrillation [Unknown]
  - Hypoalbuminaemia [Unknown]
  - Diarrhoea [Unknown]
  - Therapy partial responder [Unknown]
  - Off label use [Unknown]
